FAERS Safety Report 10679983 (Version 1)
Quarter: 2014Q4

REPORT INFORMATION
  Report Type: Report from Study
  Country: ES (occurrence: ES)
  Receive Date: 20141229
  Receipt Date: 20141229
  Transmission Date: 20150529
  Serious: Yes (Hospitalization)
  Sender: FDA-Public Use
  Company Number: US-ASTRAZENECA-2014SE98540

PATIENT
  Age: 705 Day
  Sex: Male
  Weight: 8.5 kg

DRUGS (1)
  1. SYNAGIS [Suspect]
     Active Substance: PALIVIZUMAB
     Indication: ANTIVIRAL PROPHYLAXIS
     Route: 030
     Dates: start: 20141026

REACTIONS (2)
  - Increased bronchial secretion [Unknown]
  - Pneumonia [Unknown]

NARRATIVE: CASE EVENT DATE: 20141115
